FAERS Safety Report 7708419-8 (Version None)
Quarter: 2011Q3

REPORT INFORMATION
  Report Type: 
  Country: None (occurrence: None)
  Receive Date: 20110825
  Receipt Date: 20110816
  Transmission Date: 20111222
  Serious: Yes (Hospitalization)
  Sender: FDA-Public Use
  Company Number: FR-ELI_LILLY_AND_COMPANY-FR201103006968

PATIENT
  Age: 52 Year
  Sex: Male

DRUGS (3)
  1. OLANZAPINE [Suspect]
     Indication: BIPOLAR DISORDER
     Dosage: 405 MG, Q4W
     Route: 030
  2. TRANXENE [Concomitant]
     Indication: BIPOLAR DISORDER
     Dosage: 10 MG, QD IF NEEDED
     Route: 048
  3. DEPAKOTE [Concomitant]
     Dosage: 1500 MG, QD
     Route: 048

REACTIONS (5)
  - AGITATION [None]
  - RESTLESS LEGS SYNDROME [None]
  - DYSARTHRIA [None]
  - DYSKINESIA [None]
  - CONFUSIONAL STATE [None]
